FAERS Safety Report 20551773 (Version 3)
Quarter: 2022Q2

REPORT INFORMATION
  Report Type: Spontaneous
  Country: US (occurrence: US)
  Receive Date: 20220304
  Receipt Date: 20220414
  Transmission Date: 20220721
  Serious: Yes (Other)
  Sender: FDA-Public Use
  Company Number: US-AMGEN-USASP2022034332

PATIENT
  Age: 87 Year
  Sex: Female

DRUGS (20)
  1. PROLIA [Suspect]
     Active Substance: DENOSUMAB
     Indication: Osteoporosis postmenopausal
     Dosage: 60 MILLIGRAM, Q6MO
     Route: 065
     Dates: start: 20140213
  2. TOCILIZUMAB [Concomitant]
     Active Substance: TOCILIZUMAB
     Dosage: UNK
     Dates: start: 20200720
  3. PREDNISONE [Concomitant]
     Active Substance: PREDNISONE
     Dosage: 2 MILLIGRAM
  4. PREDNISONE [Concomitant]
     Active Substance: PREDNISONE
     Dosage: 2.5 MILLIGRAM
  5. DECADRON [Concomitant]
     Active Substance: DEXAMETHASONE
     Dosage: UNK
     Dates: start: 201812
  6. ADRESET [Concomitant]
     Indication: Fatigue
  7. CLARITIN-D NOS [Concomitant]
     Active Substance: LORATADINE\PSEUDOEPHEDRINE SULFATE
     Dosage: 5-120MG, QD
     Route: 048
     Dates: start: 20160823
  8. ACETAMINOPHEN [Concomitant]
     Active Substance: ACETAMINOPHEN
     Dosage: 500 MILLIGRAM
     Route: 048
     Dates: start: 20200213
  9. METHYLPREDNISOLONE [Concomitant]
     Active Substance: METHYLPREDNISOLONE
     Dosage: 500 MILLIGRAM, QD
     Route: 048
     Dates: start: 20211025
  10. LIDOCAINE [Concomitant]
     Active Substance: LIDOCAINE
     Dosage: 5 % PATCH
     Dates: start: 20220317
  11. PEPCID [Concomitant]
     Active Substance: FAMOTIDINE
     Dosage: 40 MILLIGRAM
     Route: 048
     Dates: start: 20200501
  12. MYRBETRIQ [Concomitant]
     Active Substance: MIRABEGRON
     Dosage: 50 MILLIGRAM, QD
     Dates: start: 20160802
  13. COBAMAMIDE [Concomitant]
     Active Substance: COBAMAMIDE
     Dosage: 1000 MICROGRAM, QD
     Route: 048
     Dates: start: 20150202
  14. OMEPRAZOLE [Concomitant]
     Active Substance: OMEPRAZOLE
     Dosage: 40 MILLIGRAM, QD
     Route: 048
  15. CALCIUM CITRATE [Concomitant]
     Active Substance: CALCIUM CITRATE
     Dosage: UNK UNK, QD
     Route: 048
  16. MIRALAX [Concomitant]
     Active Substance: POLYETHYLENE GLYCOL 3350
     Dosage: 17 GM PACKET
     Route: 048
  17. FORTIFY [Concomitant]
     Active Substance: MENTHOL
     Dosage: UNK, QD
  18. D-MANNOSE [Concomitant]
     Dosage: UNK UNK, QD
     Route: 048
  19. TRIAMCINOLONE ACETONIDE [Concomitant]
     Active Substance: TRIAMCINOLONE ACETONIDE
     Dosage: 55 MCG/ACT AEROSOL 1 SPRAY IN EACH NOSTRIL
     Route: 045
  20. PREMARIN [Concomitant]
     Active Substance: ESTROGENS, CONJUGATED
     Dosage: UNK UNK, QWK
     Route: 048

REACTIONS (12)
  - Cardiac murmur [Unknown]
  - Cataract operation [Unknown]
  - Polymyalgia rheumatica [Unknown]
  - Fall [Unknown]
  - Atypical femur fracture [Unknown]
  - Vitamin B12 deficiency [Unknown]
  - Sleep disorder [Unknown]
  - Essential hypertension [Unknown]
  - Giant cell arteritis [Unknown]
  - Lumbar spinal stenosis [Unknown]
  - Spondylolisthesis [Unknown]
  - Eye muscle operation [Unknown]

NARRATIVE: CASE EVENT DATE: 20140101
